FAERS Safety Report 4427559-2 (Version None)
Quarter: 2004Q3

REPORT INFORMATION
  Report Type: 
  Country: None (occurrence: None)
  Receive Date: 20040812
  Receipt Date: 20040729
  Transmission Date: 20050211
  Serious: No
  Sender: FDA-Public Use
  Company Number: 2004-BP-06192BP

PATIENT
  Age: 22 Year
  Sex: Male

DRUGS (1)
  1. METACAM ORAL SUSPENSION [Suspect]
     Indication: MEDICATION ERROR
     Dosage: (SEE TEXT, 1.5 MG/ML), IO
     Route: 031
     Dates: start: 20040713

REACTIONS (2)
  - EYE IRRITATION [None]
  - MEDICATION ERROR [None]
